FAERS Safety Report 4510061-7 (Version None)
Quarter: 2004Q4

REPORT INFORMATION
  Report Type: 
  Country: None (occurrence: None)
  Receive Date: 20041119
  Receipt Date: 20041109
  Transmission Date: 20050328
  Serious: Yes (Hospitalization, Other)
  Sender: FDA-Public Use
  Company Number: 2004076304

PATIENT
  Age: 67 Year
  Sex: Male
  Weight: 79 kg

DRUGS (6)
  1. ATARAX [Suspect]
     Indication: PRURITUS
     Dosage: 10 MG (10 MG, 1 IN 1 D), ORAL
     Route: 048
     Dates: start: 20040902, end: 20041008
  2. BACTRIM [Suspect]
     Indication: PROSTATITIS
     Dosage: (2 IN 1 D), ORAL
     Route: 048
     Dates: start: 20040713, end: 20040817
  3. KETOTIFEN FUMARATE (KETOTIFEN FUMARATE) [Suspect]
     Indication: TOXIC SKIN ERUPTION
     Dosage: (2 IN 1 D), ORAL
     Route: 048
     Dates: start: 20040831, end: 20040930
  4. REBAMIPIDE (REBAMIPIDE) [Suspect]
     Indication: ILL-DEFINED DISORDER
     Dosage: 300 MG (100 MG, 3 IN 1 D), ORAL
     Route: 048
     Dates: start: 20040903, end: 20041008
  5. OXATOMIDE [Suspect]
     Indication: ILL-DEFINED DISORDER
     Dates: start: 20040930
  6. PREDNISOLONE [Concomitant]

REACTIONS (3)
  - DRUG HYPERSENSITIVITY [None]
  - NEPHRITIS INTERSTITIAL [None]
  - TOXIC SKIN ERUPTION [None]
